FAERS Safety Report 16500859 (Version 1)
Quarter: 2019Q3

REPORT INFORMATION
  Report Type: Spontaneous
  Country: US (occurrence: US)
  Receive Date: 20190628
  Receipt Date: 20190628
  Transmission Date: 20191004
  Serious: Yes (Hospitalization)
  Sender: FDA-Public Use
  Company Number: None

PATIENT
  Sex: Female

DRUGS (6)
  1. CONTRAVE [Concomitant]
     Active Substance: BUPROPION HYDROCHLORIDE\NALTREXONE HYDROCHLORIDE
  2. CELEBREX [Concomitant]
     Active Substance: CELECOXIB
  3. LEUCOVOR [Concomitant]
  4. METHOTREXATE. [Concomitant]
     Active Substance: METHOTREXATE
  5. ENBREL [Suspect]
     Active Substance: ETANERCEPT
     Indication: RHEUMATOID ARTHRITIS
     Dosage: ?          OTHER FREQUENCY:QWK;?
     Route: 058
  6. FOLIC ACID. [Concomitant]
     Active Substance: FOLIC ACID

REACTIONS (2)
  - Therapy cessation [None]
  - Surgery [None]
